FAERS Safety Report 19250748 (Version 8)
Quarter: 2022Q2

REPORT INFORMATION
  Report Type: Spontaneous
  Country: DK (occurrence: DK)
  Receive Date: 20210513
  Receipt Date: 20220419
  Transmission Date: 20220721
  Serious: Yes (Hospitalization, Other)
  Sender: FDA-Public Use
  Company Number: DK-ACCORD-224935

PATIENT
  Age: 67 Year
  Sex: Female
  Weight: 62.70 kg

DRUGS (70)
  1. GEMCITABINE HYDROCHLORIDE [Suspect]
     Active Substance: GEMCITABINE HYDROCHLORIDE
     Indication: Diffuse large B-cell lymphoma stage IV
     Route: 042
     Dates: start: 20210412, end: 20210412
  2. OXALIPLATIN [Suspect]
     Active Substance: OXALIPLATIN
     Indication: Diffuse large B-cell lymphoma stage IV
     Route: 042
     Dates: start: 20210412, end: 20210412
  3. EPCORITAMAB [Suspect]
     Active Substance: EPCORITAMAB
     Indication: Diffuse large B-cell lymphoma stage IV
     Dosage: SINGLE
     Route: 058
     Dates: start: 20210412, end: 20210412
  4. ZOLEDRONIC ACID [Concomitant]
     Active Substance: ZOLEDRONIC ACID
     Indication: Product used for unknown indication
     Route: 042
     Dates: start: 20200902
  5. CETIRIZINE [Concomitant]
     Active Substance: CETIRIZINE HYDROCHLORIDE
     Indication: Premedication
     Dosage: 23-AUG-2021/END DATE: 20-SEP-2021
     Route: 048
     Dates: start: 202108
  6. ACETAMINOPHEN [Concomitant]
     Active Substance: ACETAMINOPHEN
     Indication: Premedication
     Route: 048
     Dates: start: 20210815
  7. FURIX [Concomitant]
     Dates: start: 20210227
  8. POTASSIUM CHLORIDE [Concomitant]
     Active Substance: POTASSIUM CHLORIDE
     Dates: start: 20210430
  9. METOCLOPRAMIDE [Concomitant]
     Active Substance: METOCLOPRAMIDE
     Dates: start: 20201027
  10. MORPHINE [Concomitant]
     Active Substance: MORPHINE
     Dates: start: 20201024
  11. ONDANSETRON [Concomitant]
     Active Substance: ONDANSETRON
     Dates: start: 20201027
  12. PREGABALIN [Concomitant]
     Active Substance: PREGABALIN
     Dates: start: 20190930
  13. TRAMADOL [Concomitant]
     Active Substance: TRAMADOL
     Dates: start: 20210414
  14. UNIKALK BASIC [Concomitant]
     Dosage: BID
     Dates: start: 20200611
  15. GALENIC /GLUCOSE/SODIUM CL/POTASSIU [Concomitant]
     Dates: start: 20210417
  16. PREDNISOLONE [Concomitant]
     Active Substance: PREDNISOLONE
     Dates: start: 20210412, end: 20210509
  17. ALLOPURINOL [Concomitant]
     Active Substance: ALLOPURINOL
     Dates: start: 20210408
  18. FLUCONAZOLE [Concomitant]
     Active Substance: FLUCONAZOLE
     Dates: start: 20210224, end: 20210920
  19. FRAGMIN [Concomitant]
     Active Substance: DALTEPARIN SODIUM
     Dates: start: 20210325
  20. ACETAMINOPHEN [Concomitant]
     Active Substance: ACETAMINOPHEN
     Dates: start: 20210722, end: 20210722
  21. DEXAMETHASONE [Concomitant]
     Active Substance: DEXAMETHASONE
     Dates: start: 20210514, end: 20210809
  22. CLEMASTINE [Concomitant]
     Active Substance: CLEMASTINE
     Dates: start: 20210706
  23. POTASSIUM PHOSPHATE, DIBASIC [Concomitant]
     Active Substance: POTASSIUM PHOSPHATE, DIBASIC
     Dosage: END DATE : 20-SEP-2021
     Dates: start: 20210423, end: 20210920
  24. LEVOFLOXACIN [Concomitant]
     Active Substance: LEVOFLOXACIN
     Dosage: END DATE : 20-SEP-2021
     Dates: start: 20210506, end: 20210920
  25. MAGNESIUM [Concomitant]
     Active Substance: MAGNESIUM
     Dates: start: 20210628, end: 20210714
  26. METHYLPREDNISOLONE [Concomitant]
     Active Substance: METHYLPREDNISOLONE
     Dates: start: 20210621
  27. POTASSIUM HYDROXIDE [Concomitant]
     Active Substance: POTASSIUM HYDROXIDE
     Dosage: END DATE: 20-SEP-2021
     Dates: start: 20210423
  28. SODIUM PHOSPHATE [Concomitant]
     Active Substance: SODIUM PHOSPHATE
     Dosage: END DATE : 20-SEP-2021
     Dates: start: 20210423
  29. SODIUM CHLORIDE [Concomitant]
     Active Substance: SODIUM CHLORIDE
     Dosage: END DATE : 20-SEP-2021
     Dates: start: 20210609, end: 20210920
  30. IOMERON [Concomitant]
     Active Substance: IOMEPROL
     Dates: start: 20210705, end: 20211005
  31. VALACYCLOVIR HYDROCHLORIDE [Concomitant]
     Active Substance: VALACYCLOVIR HYDROCHLORIDE
     Dosage: START DATE: 20-SEP-2021
  32. MAGNESIUM SULFATE [Concomitant]
     Active Substance: MAGNESIUM SULFATE
     Dates: start: 20210806, end: 20210806
  33. ZIEXTENZO [Concomitant]
     Active Substance: PEGFILGRASTIM-BMEZ
     Dates: start: 20210517, end: 20210604
  34. HYDROCORTISONE [Concomitant]
     Active Substance: HYDROCORTISONE
     Dates: start: 20210721
  35. ALFENTANIL KALCEKS [Concomitant]
     Dates: start: 20211026, end: 20211026
  36. CARBOCAIN-ADRENALIN [Concomitant]
     Dates: start: 20211026, end: 20211026
  37. CETIRIZINE HYDROCHLORIDE [Concomitant]
     Active Substance: CETIRIZINE HYDROCHLORIDE
     Dates: start: 20210621
  38. CILOXAN [Concomitant]
     Active Substance: CIPROFLOXACIN HYDROCHLORIDE
     Dates: start: 20211122, end: 20211130
  39. CYCLOGYL [Concomitant]
     Active Substance: CYCLOPENTOLATE HYDROCHLORIDE
     Dates: start: 20211122, end: 20211130
  40. DEXAMETHASONE SODIUM PHOSPHATE [Concomitant]
     Active Substance: DEXAMETHASONE SODIUM PHOSPHATE
     Dates: start: 20211020, end: 20211024
  41. FENTANYL [Concomitant]
     Active Substance: FENTANYL
     Dates: start: 20211026, end: 20211026
  42. GENTAMICIN [Concomitant]
     Active Substance: GENTAMICIN
     Dates: start: 20211020, end: 20211022
  43. IBUPROFEN [Concomitant]
     Active Substance: IBUPROFEN
     Dates: start: 20211026, end: 20211026
  44. INSULIN HUMAN [Concomitant]
     Active Substance: INSULIN HUMAN
     Dates: start: 20211023, end: 20211026
  45. KETOROLAC [Concomitant]
     Active Substance: KETOROLAC TROMETHAMINE
     Dates: start: 20211026, end: 20211026
  46. LIDOKAIN-ADRENALIN SAD [Concomitant]
     Dates: start: 20211026, end: 20211026
  47. GALENIC /GLUCOSE/SODIUM CL/POTASSIU [Concomitant]
     Dates: start: 20210729, end: 20210920
  48. MARCAIN-ADRENALIN [Concomitant]
     Dates: start: 20211026, end: 20211026
  49. MAXIDEX [Concomitant]
     Active Substance: DEXAMETHASONE
     Dates: start: 20211123, end: 20211206
  50. PHENYLEPHRINE HYDROCHLORIDE [Concomitant]
     Active Substance: PHENYLEPHRINE HYDROCHLORIDE
     Dates: start: 20211122, end: 20211130
  51. METRONIDAZOLE [Concomitant]
     Active Substance: METRONIDAZOLE
     Dates: start: 20211101, end: 20211106
  52. MIDAZOLAM [Concomitant]
     Active Substance: MIDAZOLAM
     Dates: start: 20211026, end: 20211026
  53. NOVESINE [Concomitant]
     Dates: start: 20211122, end: 20211130
  54. PENICILLIN V [Concomitant]
     Active Substance: PENICILLIN V
     Dates: start: 20211102, end: 20211106
  55. PIPERACILLIN SODIUM\TAZOBACTAM SODIUM [Concomitant]
     Active Substance: PIPERACILLIN SODIUM\TAZOBACTAM SODIUM
     Dates: start: 20211019, end: 20211025
  56. SODIUM PHOSPHATE, DIBASIC [Concomitant]
     Active Substance: SODIUM PHOSPHATE, DIBASIC
     Dates: start: 20210423, end: 20210920
  57. ROPIVACAINE [Concomitant]
     Active Substance: ROPIVACAINE
     Dates: start: 20211026, end: 20211026
  58. OXYCODONE HYDROCHLORIDE [Concomitant]
     Active Substance: OXYCODONE HYDROCHLORIDE
     Dates: start: 20211026, end: 20211102
  59. CLEMASTINE FUMARATE [Concomitant]
     Active Substance: CLEMASTINE FUMARATE
     Dates: start: 20211115, end: 20211115
  60. SOLU-CORTEF [Concomitant]
     Active Substance: HYDROCORTISONE SODIUM SUCCINATE
     Dates: start: 20210614, end: 20211021
  61. TOCILIZUMAB [Concomitant]
     Active Substance: TOCILIZUMAB
     Dates: start: 20211019, end: 20211020
  62. DICLOFENAC SODIUM [Concomitant]
     Active Substance: DICLOFENAC SODIUM
     Dates: start: 20211123, end: 20211213
  63. VOLTAREN [Concomitant]
     Active Substance: DICLOFENAC SODIUM
     Dates: start: 20211130, end: 20211130
  64. VOLTAREN [Concomitant]
     Active Substance: DICLOFENAC SODIUM
     Dates: start: 20211122, end: 20211122
  65. XYLOCAINE [Concomitant]
     Active Substance: LIDOCAINE HYDROCHLORIDE
     Dates: start: 20211026, end: 20211026
  66. CETIRIZINE HYDROCHLORIDE [Concomitant]
     Active Substance: CETIRIZINE HYDROCHLORIDE
     Dates: start: 20210506, end: 20210507
  67. OMNIPAQUE [Concomitant]
     Active Substance: IOHEXOL
     Dates: start: 20210524, end: 20210524
  68. DEXAMETHASONE [Concomitant]
     Active Substance: DEXAMETHASONE
     Dates: start: 20210514, end: 20210514
  69. POTASSIUM HYDROXIDE\POTASSIUM PHOSPHATE, DIBASIC\SODIUM PHOSPHATE, DIB [Concomitant]
     Active Substance: POTASSIUM HYDROXIDE\POTASSIUM PHOSPHATE, DIBASIC\SODIUM PHOSPHATE, DIBASIC, ANHYDROUS
     Dosage: 10ML, PRN
     Route: 042
     Dates: start: 20210423, end: 20210920
  70. AMOXICILLIN [Concomitant]
     Active Substance: AMOXICILLIN
     Indication: Prophylaxis
     Dosage: 500+125 MG, TID
     Route: 048
     Dates: start: 20210503, end: 20210505

REACTIONS (8)
  - Off label use [Unknown]
  - Anaemia [Recovered/Resolved]
  - Diarrhoea [Recovered/Resolved]
  - Fatigue [Recovered/Resolved]
  - Cytokine release syndrome [Recovered/Resolved]
  - Infusion related reaction [Recovered/Resolved]
  - Vomiting [Unknown]
  - Dyspnoea [Unknown]

NARRATIVE: CASE EVENT DATE: 20210413
